FAERS Safety Report 8259502-2 (Version None)
Quarter: 2012Q2

REPORT INFORMATION
  Report Type: 
  Country: None (occurrence: None)
  Receive Date: 20120404
  Receipt Date: 20120326
  Transmission Date: 20120825
  Serious: Yes (Hospitalization)
  Sender: FDA-Public Use
  Company Number: US-ASTRAZENECA-2012SE20377

PATIENT
  Age: 57 Year
  Sex: Male

DRUGS (6)
  1. CRESTOR [Suspect]
     Route: 048
  2. ASPIRIN [Concomitant]
  3. ALPRAZOLAM [Concomitant]
  4. OTHER GENETIC DRUGS [Concomitant]
  5. PAROXETINE [Concomitant]
  6. ENALAPRIL [Concomitant]

REACTIONS (5)
  - CARDIAC DISORDER [None]
  - HEADACHE [None]
  - BLOOD CHOLESTEROL INCREASED [None]
  - HEART RATE INCREASED [None]
  - NAUSEA [None]
